FAERS Safety Report 7408375-6 (Version None)
Quarter: 2011Q2

REPORT INFORMATION
  Report Type: 
  Country: None (occurrence: None)
  Receive Date: 20110401
  Receipt Date: 20110318
  Transmission Date: 20111010
  Serious: Yes (Hospitalization)
  Sender: FDA-Public Use
  Company Number: 11-000299

PATIENT
  Age: 16 Year
  Sex: Female
  Weight: 65.8 kg

DRUGS (2)
  1. LOESTRIN 24 FE [Suspect]
     Indication: CONTRACEPTION
     Dosage: 20/1000 UG, QD, ORAL
     Route: 048
     Dates: start: 20110201
  2. ADDERALL 10 [Concomitant]

REACTIONS (10)
  - BREAST ENLARGEMENT [None]
  - DRUG DOSE OMISSION [None]
  - FATIGUE [None]
  - HYPOMENORRHOEA [None]
  - METRORRHAGIA [None]
  - MUSCULOSKELETAL PAIN [None]
  - BREAST TENDERNESS [None]
  - VOMITING [None]
  - TREATMENT NONCOMPLIANCE [None]
  - CRYING [None]
